FAERS Safety Report 4725971-5 (Version None)
Quarter: 2005Q3

REPORT INFORMATION
  Report Type: 
  Country: None (occurrence: None)
  Receive Date: 20050727
  Receipt Date: 20050709
  Transmission Date: 20060218
  Serious: Yes (Other)
  Sender: FDA-Public Use
  Company Number: 05-06-1101

PATIENT
  Age: 57 Year
  Sex: Female

DRUGS (13)
  1. CO-AMOXICLAV [Suspect]
     Indication: LOWER RESPIRATORY TRACT INFECTION
     Dosage: 625MG THREE TIMES PER DAY
     Route: 048
     Dates: start: 20050404, end: 20050421
  2. CIPROFLOXACIN [Suspect]
     Indication: LOWER RESPIRATORY TRACT INFECTION
     Dosage: 750MG TWICE PER DAY
     Route: 048
     Dates: start: 20050319, end: 20050417
  3. AMILORIDE HCL [Concomitant]
     Dosage: 1UNIT IN THE MORNING
     Route: 048
  4. CALCICHEW D3 [Concomitant]
     Dosage: 1UNIT TWICE PER DAY
     Route: 048
  5. GLIMEPIRIDE [Concomitant]
     Dosage: 3MG PER DAY
     Route: 065
  6. ATROVENT [Concomitant]
     Dosage: 400MCG FOUR TIMES PER DAY
     Route: 065
  7. PULMICORT [Concomitant]
     Dosage: 1UNIT FOUR TIMES PER DAY
     Route: 065
  8. FUROSEMIDE [Concomitant]
     Dosage: 40MG PER DAY
     Route: 065
  9. ALBUTEROL SULFATE HFA [Concomitant]
     Route: 055
  10. LANSOPRAZOLE [Concomitant]
     Dosage: 15MG PER DAY
     Route: 065
  11. PREDNISOLONE [Concomitant]
     Dosage: 5MG PER DAY
     Route: 065
  12. METOCLOPRAMIDE [Concomitant]
     Dosage: 10MG THREE TIMES PER DAY
     Route: 065
  13. INSULATARD NPH HUMAN [Concomitant]
     Dosage: 5MG AT NIGHT
     Route: 065

REACTIONS (2)
  - ABASIA [None]
  - ARTHRALGIA [None]
